FAERS Safety Report 8615041-8 (Version None)
Quarter: 2012Q3

REPORT INFORMATION
  Report Type: 
  Country: None (occurrence: None)
  Receive Date: 20120823
  Receipt Date: 20120810
  Transmission Date: 20120928
  Serious: Yes (Hospitalization)
  Sender: FDA-Public Use
  Company Number: ES-INCYTE CORPORATION-2012IN001524

PATIENT
  Sex: Male

DRUGS (1)
  1. INC424 [Suspect]
     Indication: MYELOFIBROSIS
     Dosage: 20 MG, BID
     Route: 048
     Dates: start: 20120501, end: 20120809

REACTIONS (4)
  - FATIGUE [None]
  - RESPIRATORY FAILURE [None]
  - PULMONARY OEDEMA [None]
  - CARDIAC FAILURE [None]
